FAERS Safety Report 9939868 (Version 1)
Quarter: 2014Q1

REPORT INFORMATION
  Report Type: Report from Study
  Country: US (occurrence: US)
  Receive Date: 20140303
  Receipt Date: 20140303
  Transmission Date: 20141002
  Serious: No
  Sender: FDA-Public Use
  Company Number: US-ABBVIE-13P-163-1035200-00

PATIENT
  Sex: Male
  Weight: 108.96 kg

DRUGS (8)
  1. HUMIRA [Suspect]
     Indication: JUVENILE IDIOPATHIC ARTHRITIS
     Dates: start: 201209
  2. PREDNISONE [Concomitant]
     Indication: JUVENILE IDIOPATHIC ARTHRITIS
  3. GABAPENTIN [Concomitant]
     Indication: NEUROPATHY PERIPHERAL
  4. PANTOPRAZOLE [Concomitant]
     Indication: GASTRIC DISORDER
  5. PANTOPRAZOLE [Concomitant]
     Indication: PROPHYLAXIS
  6. FOSAMAX [Concomitant]
     Indication: OSTEOPOROSIS PROPHYLAXIS
  7. METHOTREXATE [Concomitant]
     Indication: JUVENILE IDIOPATHIC ARTHRITIS
  8. FOLIC ACID [Concomitant]
     Indication: VITAMIN SUPPLEMENTATION

REACTIONS (1)
  - Off label use [Not Recovered/Not Resolved]
